FAERS Safety Report 13413314 (Version 4)
Quarter: 2017Q2

REPORT INFORMATION
  Report Type: Spontaneous
  Country: FR (occurrence: FR)
  Receive Date: 20170407
  Receipt Date: 20170525
  Transmission Date: 20170830
  Serious: Yes (Other)
  Sender: FDA-Public Use
  Company Number: FR-TEVA-758124ROM

PATIENT
  Age: 7 Year
  Sex: Male

DRUGS (2)
  1. CLOBETASOL [Interacting]
     Active Substance: CLOBETASOL
     Indication: PSORIASIS
     Dosage: CREAM 500MG/G
     Route: 061
  2. ACITRETIN. [Suspect]
     Active Substance: ACITRETIN
     Indication: PSORIASIS
     Route: 065

REACTIONS (3)
  - Drug interaction [Recovered/Resolved]
  - Off label use [Unknown]
  - Cushing^s syndrome [Recovered/Resolved]
